FAERS Safety Report 10561982 (Version 2)
Quarter: 2014Q4

REPORT INFORMATION
  Report Type: Spontaneous
  Country: GB (occurrence: GB)
  Receive Date: 20141104
  Receipt Date: 20141118
  Transmission Date: 20150529
  Serious: Yes (Death, Other)
  Sender: FDA-Public Use
  Company Number: GB-ACCORD-026724

PATIENT
  Age: 60 Year
  Sex: Female
  Weight: 94 kg

DRUGS (10)
  1. SYMBICORT [Concomitant]
     Active Substance: BUDESONIDE\FORMOTEROL FUMARATE DIHYDRATE
  2. SERTRALINE [Concomitant]
     Active Substance: SERTRALINE HYDROCHLORIDE
     Dates: start: 201201
  3. BENDROFLUMETHIAZIDE [Concomitant]
     Active Substance: BENDROFLUMETHIAZIDE
     Indication: HYPERTENSION
  4. OLMESARTAN/OLMESARTAN MEDOXOMIL [Concomitant]
     Indication: HYPERTENSION
  5. AMITRIPTYLINE [Concomitant]
     Active Substance: AMITRIPTYLINE
     Indication: MUSCLE RELAXANT THERAPY
     Dosage: AT NIGHT. INCREASED TO 75MG, THEN REDUCED BACK TO 25MG.
     Dates: start: 20030428
  6. ESOMEPRAZOLE/ESOMEPRAZOLE MAGNESIUM/ESOMEPRAZOLE SODIUM [Concomitant]
     Dosage: AT NIGHT
  7. VOLTAROL [Concomitant]
     Active Substance: DICLOFENAC SODIUM
     Route: 061
  8. CETIRIZINE [Concomitant]
     Active Substance: CETIRIZINE HYDROCHLORIDE
  9. TRAMADOL/TRAMADOL HYDROCHLORIDE [Suspect]
     Active Substance: TRAMADOL HYDROCHLORIDE
     Indication: FRACTURE PAIN
     Dosage: AT NIGHT
     Dates: start: 200304
  10. PARACETAMOL [Concomitant]
     Active Substance: ACETAMINOPHEN

REACTIONS (2)
  - Renal failure [Not Recovered/Not Resolved]
  - Toxicity to various agents [Fatal]
